FAERS Safety Report 23508008 (Version 2)
Quarter: 2024Q1

REPORT INFORMATION
  Report Type: Spontaneous
  Country: AT (occurrence: AT)
  Receive Date: 20240209
  Receipt Date: 20240215
  Transmission Date: 20240410
  Serious: Yes (Death, Hospitalization, Other)
  Sender: FDA-Public Use
  Company Number: AT-ROCHE-2760834

PATIENT
  Age: 63 Year
  Sex: Female
  Weight: 55 kg

DRUGS (48)
  1. ABEMACICLIB [Suspect]
     Active Substance: ABEMACICLIB
     Indication: Breast cancer
     Dosage: 150 MG, BID
     Route: 048
     Dates: start: 20201029, end: 20201211
  2. FASLODEX [Suspect]
     Active Substance: FULVESTRANT
     Indication: Breast cancer
     Dosage: 500 MG, 2/M
     Route: 030
     Dates: start: 20201029, end: 20201111
  3. FASLODEX [Suspect]
     Active Substance: FULVESTRANT
     Dosage: 500 MG, MONTHLY (1/M)
     Route: 030
     Dates: start: 20201125, end: 20210110
  4. ONTRUZANT [Suspect]
     Active Substance: TRASTUZUMAB-DTTB
     Indication: Breast cancer
     Dosage: 336 MG, EVERY 3 WEEKS
     Route: 042
     Dates: start: 20181129, end: 20190516
  5. ONTRUZANT [Suspect]
     Active Substance: TRASTUZUMAB-DTTB
     Dosage: 324 MG, EVERY 3 WEEKS
     Route: 042
     Dates: start: 20190613, end: 20190704
  6. ONTRUZANT [Suspect]
     Active Substance: TRASTUZUMAB-DTTB
     Dosage: 424 MG, EVERY 3 WEEKS
     Route: 042
     Dates: start: 20201109, end: 20201109
  7. ONTRUZANT [Suspect]
     Active Substance: TRASTUZUMAB-DTTB
     Dosage: 318 MG, EVERY 3 WEEKS
     Route: 042
     Dates: start: 20201130, end: 20201221
  8. HERCEPTIN [Suspect]
     Active Substance: TRASTUZUMAB
     Indication: Breast cancer
     Dosage: 440 MG, EVERY 3 WEEKS
     Route: 042
     Dates: start: 20180719, end: 20180719
  9. HERCEPTIN [Suspect]
     Active Substance: TRASTUZUMAB
     Dosage: 330 MG, EVERY 3 WEEKS
     Route: 042
     Dates: start: 20180809, end: 20180809
  10. HERCEPTIN [Suspect]
     Active Substance: TRASTUZUMAB
     Dosage: 336 MG, EVERY 3 WEEKS
     Route: 042
     Dates: start: 20180830, end: 20181105
  11. CAPECITABINE [Suspect]
     Active Substance: CAPECITABINE
     Indication: Breast cancer
     Dosage: 1000 MG, UNKNOWN
     Route: 048
     Dates: start: 20200326, end: 20200430
  12. CAPECITABINE [Suspect]
     Active Substance: CAPECITABINE
     Dosage: 800 MG, BID
     Route: 048
     Dates: start: 20200512, end: 20200519
  13. TYKERB [Suspect]
     Active Substance: LAPATINIB DITOSYLATE
     Indication: Breast cancer
     Dosage: 1250 MG, DAILY
     Route: 048
     Dates: start: 20200326, end: 20200723
  14. TYKERB [Suspect]
     Active Substance: LAPATINIB DITOSYLATE
     Dosage: 1000 MG, DAILY
     Route: 048
     Dates: start: 20200829, end: 20201022
  15. FEMARA [Suspect]
     Active Substance: LETROZOLE
     Indication: Breast cancer
     Dosage: 2.5 MG, DAILY
     Route: 048
     Dates: start: 20190508, end: 20190819
  16. FEMARA [Suspect]
     Active Substance: LETROZOLE
     Dosage: 2.5 MG, DAILY
     Route: 048
     Dates: start: 20200512, end: 20201022
  17. PERJETA [Suspect]
     Active Substance: PERTUZUMAB
     Indication: Breast cancer
     Dosage: 840 MG, OTHER (EVERY 3 WEEKS)
     Route: 042
     Dates: start: 20180719, end: 20180719
  18. PERJETA [Suspect]
     Active Substance: PERTUZUMAB
     Dosage: 420 MG, OTHER (EVERY 3 WEEKS)
     Route: 042
     Dates: start: 20180809, end: 20190704
  19. AROMASIN [Suspect]
     Active Substance: EXEMESTANE
     Indication: Breast cancer
     Dosage: 25 MG, DAILY
     Route: 048
     Dates: start: 20180719, end: 20190507
  20. KADCYLA [Suspect]
     Active Substance: ADO-TRASTUZUMAB EMTANSINE
     Indication: Breast cancer
     Dosage: 201.6 MG, EVERY 3 WEEKS
     Route: 042
     Dates: start: 20190829, end: 20190829
  21. KADCYLA [Suspect]
     Active Substance: ADO-TRASTUZUMAB EMTANSINE
     Dosage: 143.1 MG, EVERY 3 WEEKS
     Route: 042
     Dates: start: 20191003, end: 20200213
  22. NAVELBINE [Suspect]
     Active Substance: VINORELBINE TARTRATE
     Indication: Breast cancer
     Dosage: 50 MG, UNKNOWN
     Route: 048
     Dates: start: 20180719, end: 20181130
  23. NAVELBINE [Suspect]
     Active Substance: VINORELBINE TARTRATE
     Dosage: 50 MG, UNKNOWN
     Route: 048
     Dates: start: 20181210, end: 20190206
  24. NAVELBINE [Suspect]
     Active Substance: VINORELBINE TARTRATE
     Dosage: 50 MG, EVERY 3 WEEKS
     Route: 048
     Dates: start: 20190206, end: 20190705
  25. ZOFRAN [Concomitant]
     Active Substance: ONDANSETRON HYDROCHLORIDE
     Indication: Nausea
     Dates: start: 20190919
  26. DEXABENE [Concomitant]
     Indication: Product used for unknown indication
  27. SUCRALFATE [Concomitant]
     Active Substance: SUCRALFATE
     Indication: Product used for unknown indication
  28. HALDOL [Concomitant]
     Active Substance: HALOPERIDOL
     Indication: Product used for unknown indication
  29. KYTRIL [Concomitant]
     Active Substance: GRANISETRON HYDROCHLORIDE
     Indication: Product used for unknown indication
  30. ESOMEPRAZOLE [Concomitant]
     Active Substance: ESOMEPRAZOLE
     Indication: Dysphagia
     Dates: start: 20200207
  31. EUTHYROX [Concomitant]
     Active Substance: LEVOTHYROXINE SODIUM
     Indication: Product used for unknown indication
  32. MORPHINE [Concomitant]
     Active Substance: MORPHINE
     Indication: Product used for unknown indication
  33. ORNITHINE ASPARTATE [Concomitant]
     Active Substance: ORNITHINE ASPARTATE
     Indication: Product used for unknown indication
  34. KONAKION [Concomitant]
     Active Substance: PHYTONADIONE
     Indication: Product used for unknown indication
  35. POLYETHYLENE GLYCOLS [Concomitant]
     Active Substance: POLYETHYLENE GLYCOLS
     Indication: Product used for unknown indication
     Dates: start: 20180719
  36. DEXAMETHASONE [Concomitant]
     Active Substance: DEXAMETHASONE
     Indication: Vertigo
     Dates: start: 20191114
  37. DIMETHINDENE [Concomitant]
     Active Substance: DIMETHINDENE
     Indication: Product used for unknown indication
  38. SUCRALFATE [Concomitant]
     Active Substance: SUCRALFATE
     Indication: Abdominal pain
     Dates: start: 20200512
  39. XGEVA [Concomitant]
     Active Substance: DENOSUMAB
     Indication: Product used for unknown indication
     Dates: start: 20181215
  40. HYDROMORPHONE HYDROCHLORIDE [Concomitant]
     Active Substance: HYDROMORPHONE HYDROCHLORIDE
     Indication: Product used for unknown indication
     Dates: start: 20180727
  41. AMOXICILLIN\CLAVULANATE POTASSIUM [Concomitant]
     Active Substance: AMOXICILLIN\CLAVULANATE POTASSIUM
     Indication: Product used for unknown indication
  42. MAGNESIUM SUCCINATE [Concomitant]
     Indication: Product used for unknown indication
     Dates: start: 20190819
  43. DEXPANTHENOL [Concomitant]
     Active Substance: DEXPANTHENOL
     Indication: Conjunctivitis
     Dates: start: 20190221
  44. DIMENHYDRINATE [Concomitant]
     Active Substance: DIMENHYDRINATE
     Indication: Vertigo
     Dates: start: 20191218
  45. PREDNISOLONE [Concomitant]
     Active Substance: PREDNISOLONE
     Indication: Product used for unknown indication
  46. RANITIDINE HYDROCHLORIDE [Concomitant]
     Active Substance: RANITIDINE HYDROCHLORIDE
     Indication: Product used for unknown indication
  47. NOVALGIN (METAMIZOLE SODIUM) [Concomitant]
     Active Substance: METAMIZOLE SODIUM
     Indication: Product used for unknown indication
     Dates: start: 20180727
  48. IMODIUM [Concomitant]
     Active Substance: LOPERAMIDE HYDROCHLORIDE
     Indication: Diarrhoea
     Dates: start: 20180731

REACTIONS (4)
  - Hepatic failure [Fatal]
  - Hepatic encephalopathy [Unknown]
  - Mouth haemorrhage [Unknown]
  - Malignant neoplasm progression [Unknown]

NARRATIVE: CASE EVENT DATE: 20201130
